FAERS Safety Report 4867540-2 (Version None)
Quarter: 2005Q4

REPORT INFORMATION
  Report Type: 
  Country: None (occurrence: None)
  Receive Date: 20051222
  Receipt Date: 20051213
  Transmission Date: 20060501
  Serious: Yes (Hospitalization)
  Sender: FDA-Public Use
  Company Number: US-2005-017496

PATIENT
  Age: 36 Year
  Sex: Female
  Weight: 77.1 kg

DRUGS (5)
  1. BETASERON [Suspect]
     Indication: RELAPSING-REMITTING MULTIPLE SCLEROSIS
     Dosage: SEE IMAGE
     Route: 058
     Dates: start: 20050222, end: 20050820
  2. BETASERON [Suspect]
     Indication: RELAPSING-REMITTING MULTIPLE SCLEROSIS
     Dosage: SEE IMAGE
     Route: 058
     Dates: start: 20050825
  3. VICODIN ES (HYDROCODONE BITARTRATE) [Concomitant]
  4. IMIPRAMINE [Concomitant]
  5. CORTICOSTEROIDS [Concomitant]

REACTIONS (4)
  - DEHYDRATION [None]
  - FATIGUE [None]
  - HEAT EXPOSURE INJURY [None]
  - LOSS OF CONSCIOUSNESS [None]
